FAERS Safety Report 8284869-9 (Version None)
Quarter: 2012Q2

REPORT INFORMATION
  Report Type: 
  Country: None (occurrence: None)
  Receive Date: 20120413
  Receipt Date: 20110707
  Transmission Date: 20120825
  Serious: Yes (Hospitalization)
  Sender: FDA-Public Use
  Company Number: US-ASTRAZENECA-2011SE36304

PATIENT
  Age: 65 Year
  Sex: Female

DRUGS (14)
  1. CLONAZEPAM [Concomitant]
     Indication: ANXIETY
  2. MOBIC [Concomitant]
     Indication: ARTHRITIS
  3. MULTI-VITAMINS [Concomitant]
  4. GABAPENTIN [Concomitant]
     Indication: PAIN
  5. NEURONTIN [Concomitant]
     Indication: PAIN
  6. PAXIL [Concomitant]
     Indication: DEPRESSION
  7. NEXIUM [Suspect]
     Indication: GASTROOESOPHAGEAL REFLUX DISEASE
     Route: 048
  8. NEXIUM [Suspect]
     Route: 048
  9. METFORMIN HCL [Concomitant]
     Indication: DIABETES MELLITUS
  10. ZOCOR [Concomitant]
     Indication: BLOOD CHOLESTEROL
  11. LORATADINE [Concomitant]
     Indication: MULTIPLE ALLERGIES
  12. IRON [Concomitant]
  13. SEROQUEL [Concomitant]
     Indication: BIPOLAR DISORDER
  14. HYDROCODONE BITARTRATE [Concomitant]
     Indication: PAIN

REACTIONS (8)
  - ANAEMIA [None]
  - GASTROOESOPHAGEAL REFLUX DISEASE [None]
  - INCORRECT DOSE ADMINISTERED [None]
  - DYSPHAGIA [None]
  - BACK PAIN [None]
  - NAUSEA [None]
  - CHEST DISCOMFORT [None]
  - CHEST PAIN [None]
